FAERS Safety Report 5526227-3 (Version None)
Quarter: 2007Q4

REPORT INFORMATION
  Report Type: 
  Country: None (occurrence: None)
  Receive Date: 20071127
  Receipt Date: 20071120
  Transmission Date: 20080405
  Serious: Yes (Hospitalization)
  Sender: FDA-Public Use
  Company Number: PHBS2007JP19104

PATIENT
  Age: 78 Year
  Sex: Male

DRUGS (20)
  1. CLARITHROMYCIN [Suspect]
     Indication: PHARYNGITIS
     Dosage: 400 MG/D
     Route: 048
     Dates: start: 20071102, end: 20071105
  2. HOCHUUEKKITOU [Suspect]
     Dosage: 7.5 G/DAY
     Route: 048
     Dates: start: 20071102, end: 20071105
  3. CONFATANIN [Suspect]
     Dosage: 180 MG/DAY
     Route: 048
     Dates: start: 20071102, end: 20071105
  4. LAMISIL [Suspect]
     Indication: NAIL TINEA
     Dosage: 125 MG/D
     Route: 048
     Dates: start: 20070601, end: 20070801
  5. LAMISIL [Suspect]
     Dosage: 125 MG/D
     Route: 048
     Dates: start: 20071001, end: 20071001
  6. MECOBALAMIN [Concomitant]
     Indication: NEUROPATHY PERIPHERAL
     Dosage: 1 MG/DAY
     Route: 048
     Dates: start: 19920101, end: 20071105
  7. MARZULENE S [Concomitant]
     Indication: GASTRITIS
     Dosage: 1.34 G/DAY
     Route: 048
     Dates: start: 19920101, end: 20071105
  8. NERIPROCT [Concomitant]
     Indication: ANAL FISTULA
     Dosage: 1 DF/DAY
     Route: 054
     Dates: end: 20071105
  9. DEPAS [Concomitant]
     Indication: INSOMNIA
     Dosage: 0.5 MG/DAY
     Route: 048
     Dates: end: 20071105
  10. AZULENE SODIUM SULFONATE [Concomitant]
     Indication: GASTRITIS
     Dosage: 1.5 G/DAY
     Route: 047
     Dates: start: 20071102, end: 20071105
  11. HUSCODE [Concomitant]
     Dosage: 1 DF, TID
     Route: 048
     Dates: start: 20071101, end: 20071102
  12. PL [Suspect]
     Dosage: 1 G, TID
     Route: 048
     Dates: start: 20071101, end: 20071102
  13. MEVALOTIN [Suspect]
     Indication: HYPERCHOLESTEROLAEMIA
     Dosage: 10 MG/DAY
     Route: 048
     Dates: start: 19990101, end: 20071105
  14. ASPIRIN [Suspect]
     Indication: CEREBRAL INFARCTION
     Dosage: 100 MG/DAY
     Route: 048
     Dates: start: 20050101, end: 20071105
  15. MYONAL [Suspect]
     Indication: CEREBRAL INFARCTION
     Dosage: 100 MG/DAY
     Route: 048
     Dates: start: 19920101, end: 20071105
  16. SYAKUYAKUKANZOTO [Suspect]
     Indication: MUSCLE SPASMS
     Dosage: 7.5 G/DAY
     Route: 048
     Dates: start: 20020101, end: 20071105
  17. EPERISONE HYDROCHLORIDE [Suspect]
     Indication: MUSCLE TIGHTNESS
     Dosage: 50 MG/DAY
     Route: 048
     Dates: start: 19990101, end: 20071105
  18. DICLOFENAC SODIUM [Suspect]
     Indication: NEURALGIA
     Dosage: 25 MG/DAY
     Route: 048
     Dates: start: 19990101, end: 20071105
  19. ACETAMINOPHEN [Suspect]
     Indication: PYREXIA
     Dosage: 400 MG/DAY
     Route: 048
     Dates: start: 20071102, end: 20071105
  20. BAZAROIN [Suspect]
     Indication: BRONCHITIS
     Dosage: 30 MG/DAY
     Route: 048
     Dates: start: 20071102, end: 20071105

REACTIONS (12)
  - BLOOD IMMUNOGLOBULIN E INCREASED [None]
  - BLOOD IMMUNOGLOBULIN G INCREASED [None]
  - BLOOD IMMUNOGLOBULIN M INCREASED [None]
  - BLOOD LACTATE DEHYDROGENASE INCREASED [None]
  - C-REACTIVE PROTEIN INCREASED [None]
  - DRUG RASH WITH EOSINOPHILIA AND SYSTEMIC SYMPTOMS [None]
  - EOSINOPHIL COUNT INCREASED [None]
  - HYPERHIDROSIS [None]
  - LYMPHOCYTE MORPHOLOGY ABNORMAL [None]
  - PIGMENTATION DISORDER [None]
  - PYREXIA [None]
  - TOXIC SKIN ERUPTION [None]
